FAERS Safety Report 6408449-2 (Version None)
Quarter: 2009Q4

REPORT INFORMATION
  Report Type: 
  Country: None (occurrence: None)
  Receive Date: 20091021
  Receipt Date: 20091019
  Transmission Date: 20100525
  Serious: Yes (Hospitalization, Other)
  Sender: FDA-Public Use
  Company Number: US-BRISTOL-MYERS SQUIBB COMPANY-14242085

PATIENT
  Age: 73 Year
  Sex: Female
  Weight: 57 kg

DRUGS (9)
  1. METFORMIN HCL [Suspect]
     Indication: DIABETES MELLITUS
  2. COUMADIN [Suspect]
     Indication: HEART VALVE REPLACEMENT
  3. NON-MEDICINAL PRODUCT [Suspect]
  4. FLUOXETINE [Concomitant]
  5. VYTORIN [Concomitant]
  6. KEPPRA [Concomitant]
  7. CALCIUM [Concomitant]
  8. VITAMINS [Concomitant]
  9. FOSAMAX PLUS D [Concomitant]

REACTIONS (4)
  - CEREBROVASCULAR ACCIDENT [None]
  - DIARRHOEA [None]
  - PROTHROMBIN TIME PROLONGED [None]
  - WEIGHT DECREASED [None]
